FAERS Safety Report 18379169 (Version 2)
Quarter: 2021Q4

REPORT INFORMATION
  Report Type: Spontaneous
  Country: GB (occurrence: GB)
  Receive Date: 20201014
  Receipt Date: 20211020
  Transmission Date: 20220303
  Serious: Yes (Life-Threatening, Other)
  Sender: FDA-Public Use
  Company Number: None

PATIENT

DRUGS (33)
  1. DIGOXIN [Suspect]
     Active Substance: DIGOXIN
     Dosage: 250 UG
  2. IRON ISOMALTOSIDE 1000 [Suspect]
     Active Substance: IRON ISOMALTOSIDE 1000
     Indication: Iron deficiency anaemia
     Dosage: 600 MG
     Route: 042
     Dates: start: 20200820, end: 20200820
  3. AMOXICILLIN\CLAVULANATE POTASSIUM [Concomitant]
     Active Substance: AMOXICILLIN\CLAVULANATE POTASSIUM
     Dosage: UNK
  4. HYDRALAZINE [Concomitant]
     Active Substance: HYDRALAZINE HYDROCHLORIDE
  5. BISOPROLOL FUMARATE [Concomitant]
     Active Substance: BISOPROLOL FUMARATE
  6. ZOPICLONE [Concomitant]
     Active Substance: ZOPICLONE
  7. ISOSORBIDE MONONITRATE [Concomitant]
     Active Substance: ISOSORBIDE MONONITRATE
  8. INSULIN NOS [Concomitant]
     Active Substance: INSULIN NOS
  9. MAGNESIUM ASPARTATE [Concomitant]
     Active Substance: MAGNESIUM ASPARTATE
  10. DULOXETINE [Concomitant]
     Active Substance: DULOXETINE
  11. CLARITHROMYCIN CITRATE [Concomitant]
     Active Substance: CLARITHROMYCIN CITRATE
  12. CASSIA [Concomitant]
  13. LACTULOSE [Concomitant]
     Active Substance: LACTULOSE
  14. CEFUROXIME [Concomitant]
     Active Substance: CEFUROXIME
  15. PANTOPRAZOLE SODIUM [Concomitant]
     Active Substance: PANTOPRAZOLE SODIUM
  16. DOXAZOSIN [Concomitant]
     Active Substance: DOXAZOSIN MESYLATE
  17. BENDROFLUMETHIAZIDE [Concomitant]
     Active Substance: BENDROFLUMETHIAZIDE
  18. CODEINE [Concomitant]
     Active Substance: CODEINE
  19. ATORVASTATIN CALCIUM [Concomitant]
     Active Substance: ATORVASTATIN CALCIUM
  20. TRIMETHOPRIM [Concomitant]
     Active Substance: TRIMETHOPRIM
  21. MEROPENEM [Concomitant]
     Active Substance: MEROPENEM
  22. GENERICS UK OMEPRAZOLE [Concomitant]
  23. OXYCODONE HYDROCHLORIDE [Concomitant]
     Active Substance: OXYCODONE HYDROCHLORIDE
  24. FLEET READY TO USE ENEMA [Concomitant]
  25. FERROUS FUMARATE [Concomitant]
     Active Substance: FERROUS FUMARATE
  26. CALCIUM GLUCONATE [Concomitant]
     Active Substance: CALCIUM GLUCONATE
  27. TRAZODONE [Concomitant]
     Active Substance: TRAZODONE HYDROCHLORIDE
  28. GABAPENTIN [Concomitant]
     Active Substance: GABAPENTIN
  29. FUROSEMIDE [Concomitant]
     Active Substance: FUROSEMIDE
  30. ENOXAPARIN SODIUM [Concomitant]
     Active Substance: ENOXAPARIN SODIUM
  31. PIPERACILLIN SODIUM\TAZOBACTAM SODIUM [Concomitant]
     Active Substance: PIPERACILLIN SODIUM\TAZOBACTAM SODIUM
  32. LACTULOSE [Concomitant]
     Active Substance: LACTULOSE
  33. SENNA [Concomitant]
     Active Substance: SENNA LEAF\SENNOSIDES\SENNOSIDES A AND B

REACTIONS (6)
  - Blood pressure decreased [Unknown]
  - Respiratory arrest [Unknown]
  - Cardiac output decreased [Unknown]
  - Cardiac arrest [Recovered/Resolved]
  - Sinus bradycardia [Unknown]
  - Wrong product administered [Unknown]

NARRATIVE: CASE EVENT DATE: 20200820
